FAERS Safety Report 4304251-6 (Version None)
Quarter: 2004Q1

REPORT INFORMATION
  Report Type: 
  Country: None (occurrence: None)
  Receive Date: 20040225
  Receipt Date: 20040213
  Transmission Date: 20041129
  Serious: Yes (Death, Life-Threatening, Hospitalization)
  Sender: FDA-Public Use
  Company Number: WAES 0402AUS00152

PATIENT
  Age: 54 Year
  Sex: Male

DRUGS (5)
  1. ASPIRIN [Concomitant]
  2. DILTIAZEM HYDROCHLORIDE [Suspect]
  3. INSULIN HUMAN, ISOPHANE [Concomitant]
  4. PANTOPRAZOLE [Concomitant]
     Route: 048
     Dates: end: 20030326
  5. ZOCOR [Suspect]
     Route: 048
     Dates: end: 20030327

REACTIONS (6)
  - ACIDOSIS [None]
  - DEATH [None]
  - GANGRENE [None]
  - HYPOTENSION [None]
  - RENAL FAILURE ACUTE [None]
  - RHABDOMYOLYSIS [None]
